FAERS Safety Report 11773869 (Version 1)
Quarter: 2015Q4

REPORT INFORMATION
  Report Type: Spontaneous
  Country: US (occurrence: US)
  Receive Date: 20151124
  Receipt Date: 20151124
  Transmission Date: 20160304
  Serious: No
  Sender: FDA-Public Use
  Company Number: US-APOTEX-2015AP009790

PATIENT
  Age: 9 Month
  Sex: Female

DRUGS (1)
  1. MINOXIDIL TOPICAL SOLUTION USP, 5% (EXTRA STRENGTH FOR MEN) (ALPHARMA) [Suspect]
     Active Substance: MINOXIDIL
     Indication: PRODUCT USED FOR UNKNOWN INDICATION
     Dosage: UNK
     Route: 065

REACTIONS (2)
  - Accidental exposure to product by child [Recovered/Resolved]
  - Hypertrichosis [Recovered/Resolved]
